FAERS Safety Report 21682160 (Version 1)
Quarter: 2022Q4

REPORT INFORMATION
  Report Type: Report from Study
  Country: BE (occurrence: BE)
  Receive Date: 20221205
  Receipt Date: 20221205
  Transmission Date: 20230112
  Serious: Yes (Other)
  Sender: FDA-Public Use
  Company Number: BE-ROCHE-1421975

PATIENT
  Sex: Female
  Weight: 64 kg

DRUGS (12)
  1. EPIRUBICIN [Suspect]
     Active Substance: EPIRUBICIN
     Indication: Breast cancer
     Dosage: 90-120 MG/M2, DOSE AS PER PROTOCOL
     Route: 042
  2. TRASTUZUMAB [Suspect]
     Active Substance: TRASTUZUMAB
     Indication: Breast cancer
     Dosage: LAST DATE PRIOR TO SAE - 06/MAY/2014LOADING DOSE
     Route: 042
     Dates: start: 20130806, end: 20130806
  3. TRASTUZUMAB [Suspect]
     Active Substance: TRASTUZUMAB
     Dosage: LAST DT PRIOR TO SAE-06/MAY/2014MAINTANANCE DOSE
     Route: 042
     Dates: start: 20130827, end: 20140617
  4. PERTUZUMAB [Suspect]
     Active Substance: PERTUZUMAB
     Indication: Breast cancer
     Dosage: LAST DATE PRIOR TO SAE - 06/MAY/2014LOADING DOSE
     Route: 042
     Dates: start: 20130806, end: 20130806
  5. PERTUZUMAB [Suspect]
     Active Substance: PERTUZUMAB
     Dosage: LAST DT PRIOR TO SAE-06/MAY/2014MAINTAINANCE DOSE
     Route: 042
     Dates: start: 20130827, end: 20140617
  6. BISOPROLOL [Concomitant]
     Active Substance: BISOPROLOL
     Dosage: 5 MILLIGRAM
     Route: 065
     Dates: start: 20130529
  7. TRAMADOL [Concomitant]
     Active Substance: TRAMADOL
     Dosage: 50 MILLIGRAM
     Route: 065
     Dates: start: 20140506
  8. PANTOPRAZOLE [Concomitant]
     Active Substance: PANTOPRAZOLE
     Dosage: 40 MILLIGRAM
     Route: 065
     Dates: start: 20130805
  9. RAMIPRIL [Concomitant]
     Active Substance: RAMIPRIL
     Dosage: 5 MILLIGRAM
     Route: 065
     Dates: start: 20140304
  10. BISOPROLOL FUMARATE [Concomitant]
     Active Substance: BISOPROLOL FUMARATE
     Dosage: 5 MILLIGRAM, THERAPY STOP DATE: ??-MAY-2013
     Route: 065
     Dates: start: 20130525, end: 201305
  11. RAMIPRIL [Concomitant]
     Active Substance: RAMIPRIL
     Dosage: 5 MILLIGRAM
     Route: 065
     Dates: start: 20140304
  12. AMLODIPINE BESYLATE\INDAPAMIDE\PERINDOPRIL ARGININE [Concomitant]
     Active Substance: AMLODIPINE BESYLATE\INDAPAMIDE\PERINDOPRIL ARGININE
     Dosage: 10-2.5-5MG
     Route: 065
     Dates: start: 20220216

REACTIONS (2)
  - Cardiac failure chronic [Not Recovered/Not Resolved]
  - Ejection fraction decreased [Not Recovered/Not Resolved]

NARRATIVE: CASE EVENT DATE: 20140527
